FAERS Safety Report 8187077-5 (Version None)
Quarter: 2012Q1

REPORT INFORMATION
  Report Type: 
  Country: None (occurrence: None)
  Receive Date: 20120306
  Receipt Date: 20120229
  Transmission Date: 20120608
  Serious: No
  Sender: FDA-Public Use
  Company Number: US-BAYER-2012-021330

PATIENT
  Age: 40 Year
  Sex: Female
  Weight: 68 kg

DRUGS (4)
  1. ALEVE (CAPLET) [Suspect]
     Indication: HEADACHE
  2. EXCEDRIN (MIGRAINE) [Suspect]
  3. AMOXAPINE [Concomitant]
  4. TAMOXIFEN CITRATE [Concomitant]

REACTIONS (3)
  - FEELING ABNORMAL [None]
  - NAUSEA [None]
  - HEADACHE [None]
